FAERS Safety Report 23913675 (Version 4)
Quarter: 2025Q2

REPORT INFORMATION
  Report Type: Spontaneous
  Country: US (occurrence: US)
  Receive Date: 20240529
  Receipt Date: 20250620
  Transmission Date: 20250717
  Serious: Yes (Hospitalization, Other)
  Sender: RECORDATI
  Company Number: US-RECORDATI RARE DISEASES-2024003690

PATIENT
  Age: 59 Year
  Sex: Female

DRUGS (3)
  1. PANHEMATIN [Suspect]
     Active Substance: HEMIN
     Indication: Porphyria acute
     Dates: start: 20230621
  2. PANHEMATIN [Suspect]
     Active Substance: HEMIN
     Indication: Porphyria acute
  3. PANHEMATIN [Suspect]
     Active Substance: HEMIN
     Indication: Off label use

REACTIONS (15)
  - Seizure [Recovered/Resolved]
  - Seizure [Unknown]
  - Acute respiratory failure [Recovering/Resolving]
  - Loss of consciousness [Unknown]
  - Confusional state [Recovered/Resolved]
  - Feeling abnormal [Recovered/Resolved]
  - Fall [Recovered/Resolved]
  - Depression [Not Recovered/Not Resolved]
  - Anxiety [Unknown]
  - Diplegia [Recovered/Resolved]
  - Diaphragmatic paralysis [Unknown]
  - Diplegia [Unknown]
  - Balance disorder [Unknown]
  - Off label use [Recovered/Resolved]
  - Condition aggravated [Recovered/Resolved]

NARRATIVE: CASE EVENT DATE: 20230621
